FAERS Safety Report 20433902 (Version 1)
Quarter: 2022Q1

REPORT INFORMATION
  Report Type: Report from Study
  Country: US (occurrence: US)
  Receive Date: 20220205
  Receipt Date: 20220205
  Transmission Date: 20220423
  Serious: Yes (Hospitalization)
  Sender: FDA-Public Use
  Company Number: US-EXELIXIS-XL18422048543

PATIENT

DRUGS (4)
  1. CABOZANTINIB [Suspect]
     Active Substance: CABOZANTINIB
     Indication: Penile squamous cell carcinoma
     Dosage: 40 MG, QD
     Route: 048
     Dates: start: 20190501, end: 20211223
  2. NIVOLUMAB [Suspect]
     Active Substance: NIVOLUMAB
     Indication: Penile squamous cell carcinoma
     Dosage: 3 MG/KG OVER 60 MINUTES ON DAY 1
     Route: 042
     Dates: start: 20190501
  3. NIVOLUMAB [Suspect]
     Active Substance: NIVOLUMAB
     Dosage: 480 MG, ON DAY 1
     Route: 042
  4. IPILIMUMAB [Suspect]
     Active Substance: IPILIMUMAB
     Indication: Penile squamous cell carcinoma
     Dosage: 1 MG/KG OVER 90 MINUTES ON DAY 1
     Route: 042
     Dates: start: 20210501

REACTIONS (2)
  - Cardiac failure [Recovered/Resolved]
  - Delirium [Recovered/Resolved]

NARRATIVE: CASE EVENT DATE: 20211223
